FAERS Safety Report 22342244 (Version 1)
Quarter: 2023Q2

REPORT INFORMATION
  Report Type: Spontaneous
  Country: US (occurrence: US)
  Receive Date: 20230519
  Receipt Date: 20230519
  Transmission Date: 20230722
  Serious: No
  Sender: FDA-Public Use
  Company Number: US-AJANTA-2023AJA00089

PATIENT
  Sex: Male

DRUGS (1)
  1. TOLTERODINE TARTRATE [Suspect]
     Active Substance: TOLTERODINE TARTRATE
     Indication: Product used for unknown indication

REACTIONS (5)
  - Abdominal pain upper [Unknown]
  - Headache [Unknown]
  - Constipation [Unknown]
  - Hypersensitivity [Unknown]
  - Dizziness [Unknown]
